FAERS Safety Report 7871342-2 (Version None)
Quarter: 2011Q4

REPORT INFORMATION
  Report Type: 
  Country: None (occurrence: None)
  Receive Date: 20111029
  Receipt Date: 20110301
  Transmission Date: 20120403
  Serious: No
  Sender: FDA-Public Use
  Company Number: US-AMGEN-USASP2011011598

PATIENT
  Sex: Female

DRUGS (4)
  1. DIOVAN [Concomitant]
  2. TRAMADOL HCL [Concomitant]
  3. ASPIRIN [Concomitant]
  4. ENBREL [Suspect]
     Indication: RHEUMATOID ARTHRITIS
     Dosage: UNK

REACTIONS (1)
  - PSORIASIS [None]
